FAERS Safety Report 24209831 (Version 1)
Quarter: 2024Q3

REPORT INFORMATION
  Report Type: Spontaneous
  Country: US (occurrence: US)
  Receive Date: 20240814
  Receipt Date: 20240814
  Transmission Date: 20241017
  Serious: Yes (Other)
  Sender: MYLAN
  Company Number: US-MYLANLABS-2024M1073479

PATIENT
  Age: 56 Year
  Sex: Male

DRUGS (2)
  1. MOXIFLOXACIN [Suspect]
     Active Substance: MOXIFLOXACIN
     Indication: Ulcerative keratitis
     Dosage: UNK
     Route: 061
  2. TACROLIMUS [Suspect]
     Active Substance: TACROLIMUS
     Indication: Chronic graft versus host disease in eye
     Dosage: UNK
     Route: 048

REACTIONS (1)
  - Drug ineffective [Unknown]
